FAERS Safety Report 8135685 (Version 2)
Quarter: 2019Q2

REPORT INFORMATION
  Report Type: Spontaneous
  Country: CA (occurrence: CA)
  Receive Date: 20110914
  Receipt Date: 20190411
  Transmission Date: 20190711
  Serious: Yes (Hospitalization, Other)
  Sender: FDA-Public Use
  Company Number: CA-TEVA-154026USA

PATIENT
  Age: 18 Year
  Sex: Female
  Weight: 52 kg

DRUGS (1)
  1. FUROSEMIDE. [Suspect]
     Active Substance: FUROSEMIDE
     Indication: GENERALISED OEDEMA
     Dosage: 120 MILLIGRAM DAILY;
     Route: 048

REACTIONS (2)
  - Respiratory failure [Recovered/Resolved]
  - Encephalopathy [Recovered/Resolved]

NARRATIVE: CASE EVENT DATE: 2006
